FAERS Safety Report 21364124 (Version 3)
Quarter: 2022Q4

REPORT INFORMATION
  Report Type: Report from Study
  Country: AR (occurrence: AR)
  Receive Date: 20220922
  Receipt Date: 20221010
  Transmission Date: 20230112
  Serious: Yes (Other)
  Sender: FDA-Public Use
  Company Number: AR-NOVARTISPH-NVSC2021AR192487

PATIENT
  Sex: Female

DRUGS (1)
  1. COSENTYX [Suspect]
     Active Substance: SECUKINUMAB
     Indication: Psoriasis
     Dosage: 300 MG, QMO
     Route: 058
     Dates: start: 20200601

REACTIONS (10)
  - Eye haematoma [Unknown]
  - Condition aggravated [Unknown]
  - Accident [Unknown]
  - Fall [Unknown]
  - Head injury [Unknown]
  - Eye swelling [Unknown]
  - Pain of skin [Unknown]
  - Pyrexia [Unknown]
  - Burning sensation [Unknown]
  - Drug ineffective [Unknown]
